FAERS Safety Report 8455370-4 (Version None)
Quarter: 2012Q2

REPORT INFORMATION
  Report Type: 
  Country: None (occurrence: None)
  Receive Date: 20120621
  Receipt Date: 20120613
  Transmission Date: 20120825
  Serious: Yes (Life-Threatening, Other)
  Sender: FDA-Public Use
  Company Number: DE-JNJFOC-20120606069

PATIENT
  Age: 52 Year
  Sex: Male

DRUGS (11)
  1. RISPERDAL [Suspect]
     Indication: PRODUCT USED FOR UNKNOWN INDICATION
     Route: 048
     Dates: start: 20110814, end: 20110822
  2. PALIPERIDONE [Suspect]
     Indication: PRODUCT USED FOR UNKNOWN INDICATION
     Route: 030
     Dates: start: 20110802, end: 20110802
  3. PALIPERIDONE [Suspect]
     Route: 030
     Dates: start: 20110810, end: 20110810
  4. FOLIC ACID [Concomitant]
     Route: 048
     Dates: start: 20110812
  5. ALDACTONE [Suspect]
     Indication: PRODUCT USED FOR UNKNOWN INDICATION
     Route: 048
  6. CARVEDILOL [Concomitant]
     Route: 048
  7. RAMIPRIL [Suspect]
     Indication: PRODUCT USED FOR UNKNOWN INDICATION
     Route: 048
  8. CIATYL-Z ACUPHASE [Suspect]
     Indication: PRODUCT USED FOR UNKNOWN INDICATION
     Route: 030
     Dates: start: 20110816, end: 20110816
  9. VITAMIN B-12 [Concomitant]
     Route: 048
     Dates: start: 20110812
  10. ASPIRIN [Concomitant]
     Route: 048
  11. LORAZEPAM [Concomitant]
     Route: 048
     Dates: start: 20110729

REACTIONS (7)
  - HYPONATRAEMIA [None]
  - HYPERTENSION [None]
  - VOMITING [None]
  - EPILEPSY [None]
  - PRESYNCOPE [None]
  - DIARRHOEA [None]
  - ALTERED STATE OF CONSCIOUSNESS [None]
